FAERS Safety Report 12836773 (Version 2)
Quarter: 2016Q4

REPORT INFORMATION
  Report Type: Spontaneous
  Country: GR (occurrence: GR)
  Receive Date: 20161011
  Receipt Date: 20161129
  Transmission Date: 20170207
  Serious: Yes (Hospitalization)
  Sender: FDA-Public Use
  Company Number: GR-TEVA-698352ISR

PATIENT
  Age: 44 Year
  Sex: Male

DRUGS (1)
  1. TEMOZOLOMIDE. [Suspect]
     Active Substance: TEMOZOLOMIDE
     Route: 065

REACTIONS (2)
  - Pneumocystis jirovecii infection [Recovered/Resolved]
  - Vasculitis [Recovered/Resolved]
